FAERS Safety Report 9942304 (Version 2)
Quarter: 2014Q1

REPORT INFORMATION
  Report Type: Spontaneous
  Country: GB (occurrence: GB)
  Receive Date: 20140303
  Receipt Date: 20140303
  Transmission Date: 20141002
  Serious: Yes (Other)
  Sender: FDA-Public Use
  Company Number: PHFR2014GB001180

PATIENT
  Age: 76 Year
  Sex: Female

DRUGS (9)
  1. CLOZARIL [Suspect]
     Indication: SCHIZOAFFECTIVE DISORDER
     Dosage: 125 MG, UNK
     Route: 048
     Dates: start: 20131223, end: 20140203
  2. CITALOPRAM [Concomitant]
     Dosage: 20 MG, UNK
     Route: 048
  3. ASPIRIN [Concomitant]
     Dosage: 75 MG, UNK
     Route: 048
  4. FOLIC ACID [Concomitant]
     Dosage: 5 MG, UNK
     Route: 048
  5. MAGNESIUM SALICYLATE [Concomitant]
     Dosage: 30 MG, UNK
     Route: 048
  6. PRAVASTATIN [Concomitant]
     Dosage: 10 MG, UNK
     Route: 048
  7. ALENDRONIC ACID [Concomitant]
     Dosage: 70 MG, ONCE WEEKLY
  8. LANSOPRAZOLE [Concomitant]
     Dosage: 30 MG, UNK
     Route: 048
  9. CALCICHEW D3 FORTE [Concomitant]
     Dosage: UNK UKN, QD

REACTIONS (6)
  - Concomitant disease aggravated [Unknown]
  - Platelet count decreased [Unknown]
  - Hypotension [Recovered/Resolved]
  - Dizziness [Recovered/Resolved]
  - Lethargy [Recovered/Resolved]
  - Blood pressure abnormal [Unknown]
